FAERS Safety Report 24400243 (Version 3)
Quarter: 2024Q4

REPORT INFORMATION
  Report Type: Spontaneous
  Country: US (occurrence: US)
  Receive Date: 20241005
  Receipt Date: 20241210
  Transmission Date: 20250114
  Serious: No
  Sender: SANOFI AVENTIS
  Company Number: US-SA-2024SA284324

PATIENT
  Age: 55 Year
  Sex: Female

DRUGS (22)
  1. DUPIXENT [Suspect]
     Active Substance: DUPILUMAB
     Indication: Asthma
     Dosage: 300 MG, QOW
     Route: 058
     Dates: start: 20240518
  2. ALBUTEROL [Concomitant]
     Active Substance: ALBUTEROL
  3. AZELASTINE [Concomitant]
     Active Substance: AZELASTINE
  4. BACLOFEN [Concomitant]
     Active Substance: BACLOFEN
  5. BETAMETHASONE VALERATE [Concomitant]
     Active Substance: BETAMETHASONE VALERATE
  6. BUDESONIDE [Concomitant]
     Active Substance: BUDESONIDE
  7. DIAZEPAM [Concomitant]
     Active Substance: DIAZEPAM
  8. EPINEPHRINE [Concomitant]
     Active Substance: EPINEPHRINE
  9. ESTRADIOL [Concomitant]
     Active Substance: ESTRADIOL
  10. FLUTICASONE [Concomitant]
     Active Substance: FLUTICASONE
  11. INCRUSE ELLIPTA [Concomitant]
     Active Substance: UMECLIDINIUM BROMIDE
     Route: 055
  12. IPRATROPIUM [Concomitant]
     Active Substance: IPRATROPIUM
  13. LORATADINE [Concomitant]
     Active Substance: LORATADINE
  14. MESALAMINE [Concomitant]
     Active Substance: MESALAMINE
  15. MONTELUKAST [Concomitant]
     Active Substance: MONTELUKAST
  16. ONDANSETRON [Concomitant]
     Active Substance: ONDANSETRON
  17. PREDNISONE [Concomitant]
     Active Substance: PREDNISONE
  18. SPIRIVA [Concomitant]
     Active Substance: TIOTROPIUM BROMIDE MONOHYDRATE
  19. VENTOLIN HFA [Concomitant]
     Active Substance: ALBUTEROL SULFATE
  20. VITAMIN D [Concomitant]
     Active Substance: VITAMIN D NOS
  21. VYVANSE [Concomitant]
     Active Substance: LISDEXAMFETAMINE DIMESYLATE
  22. RESCUE [Concomitant]

REACTIONS (3)
  - Impaired quality of life [Unknown]
  - Pain [Unknown]
  - Drug ineffective [Unknown]

NARRATIVE: CASE EVENT DATE: 20240101
